FAERS Safety Report 14547629 (Version 1)
Quarter: 2018Q1

REPORT INFORMATION
  Report Type: Report from Study
  Country: CA (occurrence: CA)
  Receive Date: 20180219
  Receipt Date: 20180219
  Transmission Date: 20180509
  Serious: Yes (Other)
  Sender: FDA-Public Use
  Company Number: CA-BRISTOL-MYERS SQUIBB COMPANY-BMS-2017-040466

PATIENT
  Age: 28 Year
  Sex: Male

DRUGS (4)
  1. ABATACEPT [Suspect]
     Active Substance: ABATACEPT
     Indication: PRODUCT USED FOR UNKNOWN INDICATION
     Dosage: 500 MG, Q4WK
     Route: 042
     Dates: start: 20080911
  2. METHOTREXATE. [Suspect]
     Active Substance: METHOTREXATE
     Indication: PRODUCT USED FOR UNKNOWN INDICATION
     Route: 065
  3. PLAQUENIL                          /00072602/ [Suspect]
     Active Substance: HYDROXYCHLOROQUINE DIPHOSPHATE
     Indication: PRODUCT USED FOR UNKNOWN INDICATION
     Route: 065
  4. ABATACEPT [Suspect]
     Active Substance: ABATACEPT
     Indication: RHEUMATOID ARTHRITIS
     Dosage: 750 MG, Q4WK
     Route: 042
     Dates: start: 20080911

REACTIONS (12)
  - Faeces soft [Recovering/Resolving]
  - Device malfunction [Recovering/Resolving]
  - Depression [Unknown]
  - Electric shock [Unknown]
  - Sinusitis [Recovering/Resolving]
  - Long QT syndrome [Recovered/Resolved]
  - Mouth ulceration [Recovering/Resolving]
  - Pyrexia [Unknown]
  - Nausea [Recovering/Resolving]
  - Acute sinusitis [Unknown]
  - Secretion discharge [Unknown]
  - Anxiety [Unknown]

NARRATIVE: CASE EVENT DATE: 20170420
